FAERS Safety Report 5826758-2 (Version None)
Quarter: 2008Q3

REPORT INFORMATION
  Report Type: 
  Country: None (occurrence: None)
  Receive Date: 20080728
  Receipt Date: 20080728
  Transmission Date: 20090109
  Serious: Yes (Other)
  Sender: FDA-Public Use
  Company Number: None

PATIENT
  Age: 89 Year
  Sex: Male
  Weight: 110.2241 kg

DRUGS (2)
  1. GEODON [Suspect]
     Indication: DEMENTIA
     Dosage: DAILY PO
     Route: 048
     Dates: start: 20050901, end: 20060301
  2. GEODON [Suspect]
     Indication: ILL-DEFINED DISORDER
     Dosage: DAILY PO
     Route: 048
     Dates: start: 20050901, end: 20060301

REACTIONS (2)
  - DIABETES MELLITUS INADEQUATE CONTROL [None]
  - INSULIN-REQUIRING TYPE 2 DIABETES MELLITUS [None]
